FAERS Safety Report 5190666-3 (Version None)
Quarter: 2006Q4

REPORT INFORMATION
  Report Type: 
  Country: None (occurrence: None)
  Receive Date: 20061222
  Receipt Date: 20061109
  Transmission Date: 20070319
  Serious: No
  Sender: FDA-Public Use
  Company Number: US-BRISTOL-MYERS SQUIBB COMPANY-13572144

PATIENT
  Age: 41 Year
  Sex: Female
  Weight: 107 kg

DRUGS (5)
  1. ORENCIA [Suspect]
     Indication: RHEUMATOID ARTHRITIS
     Route: 042
     Dates: start: 20061107
  2. TYLENOL W/ CODEINE NO. 3 [Concomitant]
  3. METHOTREXATE [Concomitant]
  4. NORTRIPTYLINE HCL [Concomitant]
  5. NAPROXEN [Concomitant]

REACTIONS (3)
  - NAUSEA [None]
  - PRURITUS [None]
  - RASH [None]
